FAERS Safety Report 15752596 (Version 2)
Quarter: 2021Q4

REPORT INFORMATION
  Report Type: Spontaneous
  Country: US (occurrence: US)
  Receive Date: 20181221
  Receipt Date: 20211217
  Transmission Date: 20220303
  Serious: Yes (Hospitalization)
  Sender: FDA-Public Use
  Company Number: US-VIFOR (INTERNATIONAL) INC.-VIT-2018-12405

PATIENT
  Age: 63 Year
  Sex: Male

DRUGS (12)
  1. VELTASSA [Suspect]
     Active Substance: PATIROMER
     Indication: Hyperkalaemia
     Route: 048
     Dates: start: 20170504
  2. VELTASSA [Suspect]
     Active Substance: PATIROMER
     Route: 048
     Dates: start: 20171113
  3. CARVEDILOL [Concomitant]
     Active Substance: CARVEDILOL
  4. ATORVASTATIN [Concomitant]
     Active Substance: ATORVASTATIN
  5. ALLOPURINOL [Concomitant]
     Active Substance: ALLOPURINOL
  6. BUMETANIDE [Concomitant]
     Active Substance: BUMETANIDE
  7. LOSARTAN [Concomitant]
     Active Substance: LOSARTAN
  8. AMLODIPINE [Concomitant]
     Active Substance: AMLODIPINE BESYLATE
  9. PENTOXIFYLLINE [Concomitant]
     Active Substance: PENTOXIFYLLINE
  10. CALCITRIOL [Concomitant]
     Active Substance: CALCITRIOL
  11. TAMSULOSIN [Concomitant]
     Active Substance: TAMSULOSIN
  12. SEVELAMER [Concomitant]
     Active Substance: SEVELAMER

REACTIONS (3)
  - Surgery [Unknown]
  - Product dose omission issue [Unknown]
  - Off label use [Unknown]

NARRATIVE: CASE EVENT DATE: 20170504
